FAERS Safety Report 9618986 (Version 2)
Quarter: 2013Q4

REPORT INFORMATION
  Report Type: Report from Study
  Country: US (occurrence: US)
  Receive Date: 20131014
  Receipt Date: 20131014
  Transmission Date: 20140711
  Serious: Yes (Death, Hospitalization)
  Sender: FDA-Public Use
  Company Number: US-EISAI INC-E3810-05268-SOL-US

PATIENT
  Age: 81 Year
  Sex: Female

DRUGS (1)
  1. ACIPHEX (RABEPRAZOLE) [Suspect]
     Indication: BARRETT^S OESOPHAGUS
     Route: 048

REACTIONS (2)
  - Death [Fatal]
  - Anaemia [Recovered/Resolved]
